FAERS Safety Report 8294355-8 (Version None)
Quarter: 2012Q2

REPORT INFORMATION
  Report Type: 
  Country: None (occurrence: None)
  Receive Date: 20120416
  Receipt Date: 20120330
  Transmission Date: 20120825
  Serious: Yes (Hospitalization, Other)
  Sender: FDA-Public Use
  Company Number: 2012SGN00150

PATIENT
  Age: 36 Year
  Sex: Female

DRUGS (1)
  1. ADCETRIS [Suspect]
     Indication: ANAPLASTIC LARGE CELL LYMPHOMA T- AND NULL-CELL TYPES
     Dosage: 2
     Dates: start: 20111206, end: 20111201

REACTIONS (7)
  - URTICARIA [None]
  - PHARYNGEAL OEDEMA [None]
  - SYNCOPE [None]
  - INFUSION RELATED REACTION [None]
  - HYPOTENSION [None]
  - ABDOMINAL PAIN [None]
  - DYSPNOEA [None]
